FAERS Safety Report 12996788 (Version 1)
Quarter: 2016Q4

REPORT INFORMATION
  Report Type: Spontaneous
  Country: GB (occurrence: GB)
  Receive Date: 20161204
  Receipt Date: 20161204
  Transmission Date: 20170207
  Serious: Yes (Hospitalization, Other)
  Sender: FDA-Public Use
  Company Number: GB-ROCHE-1756220

PATIENT
  Age: 60 Year
  Sex: Female

DRUGS (2)
  1. LUCENTIS [Suspect]
     Active Substance: RANIBIZUMAB
     Indication: CHOROIDAL NEOVASCULARISATION
     Dosage: RIGHT EYE
     Route: 031
     Dates: start: 20130718
  2. LUCENTIS [Suspect]
     Active Substance: RANIBIZUMAB
     Indication: PATHOLOGIC MYOPIA
     Route: 031

REACTIONS (2)
  - Retinal detachment [Recovered/Resolved]
  - Retinal tear [Unknown]

NARRATIVE: CASE EVENT DATE: 20151029
